FAERS Safety Report 5977313-5 (Version None)
Quarter: 2008Q4

REPORT INFORMATION
  Report Type: 
  Country: None (occurrence: None)
  Receive Date: 20081203
  Receipt Date: 20081119
  Transmission Date: 20090506
  Serious: Yes (Other)
  Sender: FDA-Public Use
  Company Number: PHHY2008BR29288

PATIENT
  Age: 68 Year
  Sex: Female
  Weight: 64 kg

DRUGS (12)
  1. EXFORGE [Suspect]
     Indication: HYPERTENSION
     Dosage: 1 DF, QD
     Route: 048
     Dates: end: 20081116
  2. KETOCONAZOLE [Concomitant]
     Indication: VULVOVAGINAL PRURITUS
     Dosage: 1 TABLET DAILY
     Dates: start: 20081001
  3. GALVUS [Concomitant]
     Indication: DIABETES MELLITUS
     Dosage: 1 TABLET (100 MG) DAILY
     Route: 048
     Dates: start: 20071101
  4. GALVUS [Concomitant]
     Dosage: 1 TABLET (50MG) IN THE MORNING AND 1 TABLET AT NIGHT
     Route: 048
  5. ATENOL [Concomitant]
     Indication: HYPERTENSION
     Dosage: 2 TABLETS (25 MG) DAILY
  6. PANTOPRAZOLE SODIUM [Concomitant]
     Indication: GASTRIC DISORDER
     Dosage: 1 TABLET (20 MG) DAILY
     Route: 048
     Dates: start: 20071101
  7. METFORMINA ^NOVARTIS^ [Concomitant]
     Indication: DIABETES MELLITUS
     Dosage: 1 TABLET (850 MG) IN THE MORNING AND 1 TABLET IN THE AFTERNOON
     Route: 048
  8. AAS [Concomitant]
     Indication: ANTICOAGULANT THERAPY
     Dosage: 1 TABLET (100 MG) DAILY
     Route: 048
  9. AAS [Concomitant]
     Dosage: 2 TABLETS DAILY
     Route: 048
  10. TIBOLONE [Concomitant]
     Dosage: 1 TABLET (2.5 MG) EVERY LUNCH
     Route: 048
     Dates: start: 20081001
  11. LEXOTAN [Concomitant]
     Indication: SLEEP DISORDER
     Dosage: 3 MG (HALF TABLET IN THE MORNING, HALF TABLET IN THE AFTERNOON AND 1 TABLET AT NIGHT
     Route: 048
     Dates: start: 20071101
  12. LEXOTAN [Concomitant]
     Dosage: 3 MG TABLET IN THE MORNING AND 1 LEXOTAN 3 MG TABLET AT NIGHT

REACTIONS (24)
  - ACTIVITIES OF DAILY LIVING IMPAIRED [None]
  - ARTHRALGIA [None]
  - ASTHENIA [None]
  - BACK PAIN [None]
  - BENIGN BREAST LUMP REMOVAL [None]
  - BENIGN BREAST NEOPLASM [None]
  - BLOOD GLUCOSE INCREASED [None]
  - BONE PAIN [None]
  - CEREBROVASCULAR ACCIDENT [None]
  - DEPRESSION [None]
  - DRUG EFFECT DECREASED [None]
  - FEELING ABNORMAL [None]
  - MYALGIA [None]
  - NERVOUSNESS [None]
  - NOSOCOMIAL INFECTION [None]
  - OEDEMA PERIPHERAL [None]
  - PAIN [None]
  - PAIN IN EXTREMITY [None]
  - PNEUMONIA [None]
  - POOR QUALITY SLEEP [None]
  - SENSATION OF HEAVINESS [None]
  - TREATMENT NONCOMPLIANCE [None]
  - VAGINAL ODOUR [None]
  - VULVOVAGINAL PRURITUS [None]
